FAERS Safety Report 17168720 (Version 2)
Quarter: 2020Q1

REPORT INFORMATION
  Report Type: Spontaneous
  Country: US (occurrence: US)
  Receive Date: 20191218
  Receipt Date: 20200122
  Transmission Date: 20200409
  Serious: No
  Sender: FDA-Public Use
  Company Number: US-GLAXOSMITHKLINE-US2019228322

PATIENT
  Age: 55 Year
  Sex: Female

DRUGS (1)
  1. TRANSDERM SCOP [Suspect]
     Active Substance: SCOPOLAMINE
     Indication: NAUSEA
     Dosage: UNK (USING IT FOR 6 MONTHS)
     Route: 065
     Dates: start: 20190426

REACTIONS (2)
  - Product use issue [Unknown]
  - Application site reaction [Unknown]

NARRATIVE: CASE EVENT DATE: 20191115
